FAERS Safety Report 9375600 (Version 1)
Quarter: 2013Q2

REPORT INFORMATION
  Report Type: Spontaneous
  Country: TR (occurrence: TR)
  Receive Date: 20130628
  Receipt Date: 20130628
  Transmission Date: 20140414
  Serious: Yes (Death)
  Sender: FDA-Public Use
  Company Number: PHHY2013TR066408

PATIENT
  Age: 78 Year
  Sex: Female

DRUGS (6)
  1. PIPERACILLIN+TAZOBACTAM [Suspect]
     Dosage: 2.25 MG, BID
     Route: 042
  2. DICLOFENAC [Concomitant]
     Indication: PAIN
     Route: 030
  3. DIURETICS [Concomitant]
  4. DORIPENEM [Concomitant]
  5. TIGECYCLINE [Concomitant]
  6. RIFAMPICIN [Concomitant]

REACTIONS (4)
  - Death [Fatal]
  - Skin lesion [Unknown]
  - Purpura [Unknown]
  - Pruritus [Unknown]
